FAERS Safety Report 9431493 (Version 2)
Quarter: 2013Q3

REPORT INFORMATION
  Report Type: Report from Study
  Country: US (occurrence: US)
  Receive Date: 20130730
  Receipt Date: 20130904
  Transmission Date: 20140515
  Serious: Yes (Hospitalization)
  Sender: FDA-Public Use
  Company Number: US-ASTELLAS-2013US007814

PATIENT
  Age: 6 Year
  Sex: Male
  Weight: 19 kg

DRUGS (5)
  1. TACROLIMUS OINTMENT [Suspect]
     Indication: DERMATITIS ATOPIC
     Dosage: 0.03 %, WEEKLY
     Route: 061
     Dates: start: 20090701
  2. ALBUTEROL                          /00139501/ [Concomitant]
     Indication: ASTHMA
     Dosage: 0.83 %, QID
     Route: 055
     Dates: start: 20110901
  3. PULMICORT [Concomitant]
     Indication: ASTHMA
     Dosage: 0.5 UG, BID
     Route: 055
     Dates: start: 20110901
  4. QVAR [Concomitant]
     Indication: ASTHMA
     Dosage: 40 UG, BID
     Route: 048
     Dates: start: 20110901
  5. ZYRTEC [Concomitant]
     Indication: ASTHMA
     Dosage: 5 MG, UID/QD
     Route: 048
     Dates: start: 20110901

REACTIONS (2)
  - Asthma [Recovered/Resolved]
  - Pneumonia [Recovered/Resolved]
